FAERS Safety Report 8085477-5 (Version None)
Quarter: 2012Q1

REPORT INFORMATION
  Report Type: 
  Country: None (occurrence: None)
  Receive Date: 20120128
  Receipt Date: 20110401
  Transmission Date: 20120608
  Serious: No
  Sender: FDA-Public Use
  Company Number: US-ABBOTT-11P-163-0708461-00

PATIENT
  Age: 71 Year
  Sex: Female

DRUGS (4)
  1. ASACOL [Concomitant]
     Indication: PRODUCT USED FOR UNKNOWN INDICATION
  2. HUMIRA [Suspect]
     Dates: start: 20110303
  3. HUMIRA [Suspect]
     Indication: CROHN'S DISEASE
     Dates: end: 20070101
  4. METOPROLOL TARTRATE [Concomitant]
     Indication: HYPERTENSION

REACTIONS (3)
  - INJECTION SITE HAEMATOMA [None]
  - MUSCULOSKELETAL DISORDER [None]
  - INJECTION SITE PAIN [None]
